FAERS Safety Report 24074554 (Version 1)
Quarter: 2024Q3

REPORT INFORMATION
  Report Type: Spontaneous
  Country: US (occurrence: US)
  Receive Date: 20240710
  Receipt Date: 20240710
  Transmission Date: 20241016
  Serious: No
  Sender: PIERRE FABRE MEDICAMENT
  Company Number: US-PFM-2024-00149

PATIENT
  Sex: Female
  Weight: 14.998 kg

DRUGS (1)
  1. HEMANGEOL [Suspect]
     Active Substance: PROPRANOLOL HYDROCHLORIDE
     Indication: Haemangioma
     Dosage: 2.5 ML IN AM AND 1.2 ML IN PM
     Route: 048

REACTIONS (5)
  - Haemangioma [Unknown]
  - Condition aggravated [Unknown]
  - Lethargy [Unknown]
  - Decreased appetite [Unknown]
  - Irritability [Unknown]
